FAERS Safety Report 13180568 (Version 1)
Quarter: 2017Q1

REPORT INFORMATION
  Report Type: Spontaneous
  Country: US (occurrence: US)
  Receive Date: 20170202
  Receipt Date: 20170202
  Transmission Date: 20170428
  Serious: Yes (Hospitalization, Disabling, Other)
  Sender: FDA-Public Use
  Company Number: US-009507513-1003USA01388

PATIENT
  Sex: Female
  Weight: 68.04 kg

DRUGS (13)
  1. VITAMIN E [Concomitant]
     Active Substance: .ALPHA.-TOCOPHEROL
     Dates: start: 1970
  2. BACLOFEN. [Concomitant]
     Active Substance: BACLOFEN
     Dates: start: 1976
  3. ZANTAC [Concomitant]
     Active Substance: RANITIDINE HYDROCHLORIDE
  4. FOSAMAX [Suspect]
     Active Substance: ALENDRONATE SODIUM
     Dosage: 70 MG, QD
     Route: 048
     Dates: start: 2007
  5. ASCORBIC ACID. [Concomitant]
     Active Substance: ASCORBIC ACID
     Dates: start: 1970
  6. BONIVA [Suspect]
     Active Substance: IBANDRONATE SODIUM
  7. ALENDRONATE SODIUM. [Suspect]
     Active Substance: ALENDRONATE SODIUM
     Dosage: 70 MG, UNKNOWN
     Route: 048
     Dates: start: 200807, end: 200904
  8. ALENDRONATE SODIUM. [Suspect]
     Active Substance: ALENDRONATE SODIUM
     Indication: OSTEOPOROSIS
     Dosage: 70 MG, UNKNOWN
     Route: 048
     Dates: start: 200802, end: 200803
  9. BACTRIM [Concomitant]
     Active Substance: SULFAMETHOXAZOLE\TRIMETHOPRIM
  10. FOSAMAX [Suspect]
     Active Substance: ALENDRONATE SODIUM
     Indication: OSTEOPOROSIS
     Dosage: 70 MG, QW
     Route: 048
     Dates: start: 20060424, end: 200802
  11. ALENDRONATE SODIUM. [Suspect]
     Active Substance: ALENDRONATE SODIUM
     Indication: OSTEOPOROSIS
     Dosage: 70 MG, UNKNOWN
     Route: 048
     Dates: start: 200803, end: 200807
  12. MK-9278 [Concomitant]
     Active Substance: VITAMINS
     Route: 048
     Dates: start: 1970
  13. ACTONEL [Concomitant]
     Active Substance: RISEDRONATE SODIUM
     Indication: OSTEOPOROSIS
     Dosage: 35 MG, QD
     Dates: start: 1970

REACTIONS (51)
  - Tendonitis [Unknown]
  - Cystitis [Unknown]
  - Pneumonia [Unknown]
  - Gastritis [Unknown]
  - Bronchitis [Unknown]
  - Cellulitis [Recovering/Resolving]
  - Sinus disorder [Unknown]
  - Goitre [Unknown]
  - Hyperparathyroidism [Unknown]
  - Spinal compression fracture [Unknown]
  - Urinary tract infection [Unknown]
  - Osteoarthritis [Not Recovered/Not Resolved]
  - Chronic obstructive pulmonary disease [Unknown]
  - Urinary tract infection [Recovered/Resolved]
  - Arthritis [Unknown]
  - Hypersensitivity [Unknown]
  - Adverse event [Unknown]
  - Impaired healing [Recovering/Resolving]
  - Stress fracture [Not Recovered/Not Resolved]
  - Low turnover osteopathy [Not Recovered/Not Resolved]
  - Burns second degree [Recovering/Resolving]
  - Musculoskeletal chest pain [Unknown]
  - Back pain [Unknown]
  - Exostosis [Unknown]
  - Joint range of motion decreased [Unknown]
  - Osteoporosis [Not Recovered/Not Resolved]
  - Abdominal pain [Unknown]
  - Drug administration error [Unknown]
  - Skin lesion [Unknown]
  - Fall [Recovering/Resolving]
  - Femur fracture [Not Recovered/Not Resolved]
  - Spinal compression fracture [Unknown]
  - Atrial fibrillation [Unknown]
  - Oedema peripheral [Unknown]
  - Foot deformity [Unknown]
  - Enterococcal infection [Unknown]
  - Neurogenic bowel [Unknown]
  - Autoimmune thyroiditis [Unknown]
  - Osteomalacia [Unknown]
  - Pain in extremity [Unknown]
  - Femur fracture [Recovered/Resolved]
  - Anaemia postoperative [Recovering/Resolving]
  - Fracture nonunion [Not Recovered/Not Resolved]
  - Spinal compression fracture [Unknown]
  - Spinal compression fracture [Unknown]
  - Spinal fracture [Unknown]
  - Acetabulum fracture [Recovering/Resolving]
  - Hypotension [Unknown]
  - Tooth fracture [Unknown]
  - Tooth fracture [Unknown]
  - Asthenia [Unknown]

NARRATIVE: CASE EVENT DATE: 20060524
